FAERS Safety Report 8818761 (Version 2)
Quarter: 2015Q2

REPORT INFORMATION
  Report Type: Report from Study
  Country: US (occurrence: US)
  Receive Date: 20121001
  Receipt Date: 20150625
  Transmission Date: 20150821
  Serious: Yes (Death)
  Sender: FDA-Public Use
  Company Number: US-ROCHE-1104066

PATIENT
  Age: 84 Year
  Sex: Female

DRUGS (11)
  1. HERCEPTIN [Suspect]
     Active Substance: TRASTUZUMAB
     Indication: NEOPLASM MALIGNANT
     Route: 042
     Dates: start: 20040707
  2. IRINOTECAN [Concomitant]
     Active Substance: IRINOTECAN
  3. RITUXAN [Concomitant]
     Active Substance: RITUXIMAB
     Route: 065
  4. COMPAZINE [Concomitant]
     Active Substance: PROCHLORPERAZINE MALEATE
  5. TAXOTERE [Concomitant]
     Active Substance: DOCETAXEL
     Route: 042
  6. LEUCOVORIN [Concomitant]
     Active Substance: LEUCOVORIN
     Route: 065
  7. TAXOL [Concomitant]
     Active Substance: PACLITAXEL
  8. HERCEPTIN [Suspect]
     Active Substance: TRASTUZUMAB
     Route: 042
  9. KYTRIL [Concomitant]
     Active Substance: GRANISETRON HYDROCHLORIDE
     Route: 065
  10. DECADRON [Concomitant]
     Active Substance: DEXAMETHASONE
     Route: 065
  11. PHENERGAN [Concomitant]
     Active Substance: PROMETHAZINE HYDROCHLORIDE

REACTIONS (12)
  - Pain [Unknown]
  - Nausea [Unknown]
  - Gastroenteritis [Unknown]
  - Death [Fatal]
  - Acute prerenal failure [Unknown]
  - Abdominal pain [Unknown]
  - Asthenia [Unknown]
  - Off label use [Unknown]
  - Weight decreased [Unknown]
  - Diarrhoea [Unknown]
  - Decreased appetite [Unknown]
  - Dysgeusia [Unknown]

NARRATIVE: CASE EVENT DATE: 20040809
